FAERS Safety Report 18971582 (Version 1)
Quarter: 2021Q1

REPORT INFORMATION
  Report Type: Spontaneous
  Country: DE (occurrence: DE)
  Receive Date: 20210304
  Receipt Date: 20210304
  Transmission Date: 20210420
  Serious: Yes (Hospitalization, Other)
  Sender: FDA-Public Use
  Company Number: DE-AUROBINDO-AUR-APL-2021-008764

PATIENT
  Age: 96 Year
  Sex: Female
  Weight: 65 kg

DRUGS (5)
  1. CLOZAPIN NEURAXPHARM [Suspect]
     Active Substance: CLOZAPINE
     Indication: PRODUCT USED FOR UNKNOWN INDICATION
     Dosage: UNK
     Route: 065
     Dates: start: 20210116
  2. CLOZAPINE 25 MG [Suspect]
     Active Substance: CLOZAPINE
     Indication: PRODUCT USED FOR UNKNOWN INDICATION
     Dosage: 33.5 MILLIGRAM, ONCE A DAY (12,5MG?6MG?25MG, SEIT CA. 10 JAHREN)
     Route: 065
     Dates: start: 2011, end: 202101
  3. KEPPRA [Concomitant]
     Active Substance: LEVETIRACETAM
     Indication: EPILEPSY
     Dosage: UNK
     Route: 065
     Dates: start: 202101, end: 202101
  4. MOVICOL [Concomitant]
     Active Substance: POLYETHYLENE GLYCOL 3350\POTASSIUM CHLORIDE\SODIUM BICARBONATE\SODIUM CHLORIDE
     Indication: DYSPEPSIA
     Dosage: 1 DOSAGE FORM, ONCE A DAY (0?0?1, DAUERMEDIKATION)
     Route: 065
  5. ASPIRIN. [Concomitant]
     Active Substance: ASPIRIN
     Indication: CEREBROVASCULAR ACCIDENT PROPHYLAXIS
     Dosage: 1?0?0, EINNAHME CA. 10 JAHRE
     Route: 065
     Dates: start: 2011

REACTIONS (6)
  - Altered state of consciousness [Unknown]
  - Dysphagia [Unknown]
  - Monoplegia [Unknown]
  - Pneumonia aspiration [Recovered/Resolved]
  - Brain stem ischaemia [Unknown]
  - Dysarthria [Unknown]

NARRATIVE: CASE EVENT DATE: 202101
